FAERS Safety Report 9552282 (Version 1)
Quarter: 2013Q3

REPORT INFORMATION
  Report Type: Spontaneous
  Country: US (occurrence: US)
  Receive Date: 20130925
  Receipt Date: 20130925
  Transmission Date: 20140515
  Serious: Yes (Other)
  Sender: FDA-Public Use
  Company Number: US-AMGEN-USASP2013066058

PATIENT
  Age: 55 Year
  Sex: Female

DRUGS (5)
  1. PROLIA [Suspect]
     Indication: OSTEOPOROSIS POSTMENOPAUSAL
     Dosage: UNK
     Route: 065
     Dates: start: 201203
  2. BUPROPION [Concomitant]
     Dosage: 50 MG, QD
     Route: 065
  3. CLARITIN                           /00413701/ [Concomitant]
  4. CALCIUM [Concomitant]
     Route: 065
  5. VITAMIN D                          /00107901/ [Concomitant]
     Route: 065

REACTIONS (3)
  - Rotator cuff syndrome [Unknown]
  - Melanocytic hyperplasia [Unknown]
  - Ingrowing nail [Recovered/Resolved]
